FAERS Safety Report 18659811 (Version 2)
Quarter: 2021Q1

REPORT INFORMATION
  Report Type: Spontaneous
  Country: BR (occurrence: BR)
  Receive Date: 20201223
  Receipt Date: 20210325
  Transmission Date: 20210419
  Serious: Yes (Hospitalization)
  Sender: FDA-Public Use
  Company Number: BR-ASTRAZENECA-2020SF70151

PATIENT
  Age: 58 Year
  Sex: Male

DRUGS (3)
  1. LOSARTAN. [Concomitant]
     Active Substance: LOSARTAN
     Indication: HYPERTENSION
  2. BRILINTA [Suspect]
     Active Substance: TICAGRELOR
     Indication: COMPLICATION ASSOCIATED WITH DEVICE
     Dosage: 90.0MG UNKNOWN
     Route: 048
     Dates: start: 20201117
  3. METFORMIN [Concomitant]
     Active Substance: METFORMIN HYDROCHLORIDE
     Indication: DIABETES MELLITUS

REACTIONS (1)
  - Pulmonary oedema [Recovered/Resolved]

NARRATIVE: CASE EVENT DATE: 20201214
